FAERS Safety Report 23109446 (Version 1)
Quarter: 2023Q4

REPORT INFORMATION
  Report Type: Spontaneous
  Country: None (occurrence: US)
  Receive Date: 20231026
  Receipt Date: 20231026
  Transmission Date: 20240110
  Serious: Yes (Hospitalization, Other)
  Sender: FDA-Public Use
  Company Number: US-Amphastar Pharmaceuticals, Inc.-2147474

PATIENT
  Age: 68 Year
  Sex: Male
  Weight: 72.727 kg

DRUGS (6)
  1. GLUCAGON [Suspect]
     Active Substance: GLUCAGON\GLUCAGON HYDROCHLORIDE\WATER
     Indication: Type 2 diabetes mellitus
  2. GLUCAGON [Suspect]
     Active Substance: GLUCAGON\GLUCAGON HYDROCHLORIDE\WATER
     Indication: Blood glucose decreased
  3. Blood pressure medication (unspecified) [Concomitant]
  4. Insulin (unspecified) [Concomitant]
  5. Prostate medication (unspecified) [Concomitant]
  6. Seizure medication (unspecified) [Concomitant]

REACTIONS (2)
  - Product dose omission issue [Recovered/Resolved]
  - Hospitalisation [Recovered/Resolved]

NARRATIVE: CASE EVENT DATE: 20231005
